FAERS Safety Report 10258970 (Version 1)
Quarter: 2014Q2

REPORT INFORMATION
  Report Type: Spontaneous
  Country: MX (occurrence: MX)
  Receive Date: 20140625
  Receipt Date: 20140625
  Transmission Date: 20141212
  Serious: Yes (Other)
  Sender: FDA-Public Use
  Company Number: MX-ALLERGAN-1414002US

PATIENT
  Age: 13 Year
  Sex: Male

DRUGS (1)
  1. DAPSONE UNK [Suspect]
     Indication: PEMPHIGOID
     Dosage: UNK

REACTIONS (1)
  - Angioedema [Unknown]
